FAERS Safety Report 4802604-0 (Version None)
Quarter: 2005Q4

REPORT INFORMATION
  Report Type: 
  Country: None (occurrence: None)
  Receive Date: 20051014
  Receipt Date: 20050304
  Transmission Date: 20060501
  Serious: Yes (Other)
  Sender: FDA-Public Use
  Company Number: 2005042038

PATIENT
  Age: 77 Year
  Sex: Female
  Weight: 40.8237 kg

DRUGS (4)
  1. NEURONTIN [Suspect]
     Indication: ILL-DEFINED DISORDER
     Dosage: 300 MG (100 MG, 3 IN 1 D), ORAL
     Route: 048
     Dates: start: 20040901
  2. ASPIRIN [Concomitant]
  3. ATORVASTATIN CALCIUM [Concomitant]
  4. PROPACET 100 [Concomitant]

REACTIONS (3)
  - DRUG INEFFECTIVE [None]
  - LOWER LIMB FRACTURE [None]
  - PAIN [None]
